FAERS Safety Report 5259463-4 (Version None)
Quarter: 2007Q1

REPORT INFORMATION
  Report Type: 
  Country: None (occurrence: None)
  Receive Date: 20070305
  Receipt Date: 20070220
  Transmission Date: 20070707
  Serious: No
  Sender: FDA-Public Use
  Company Number: 011029

PATIENT
  Age: 37 Year
  Sex: Female
  Weight: 113.4 kg

DRUGS (3)
  1. FLUOXETINE [Suspect]
     Indication: DEPRESSION
     Dosage: 20 MG, QD, ORAL
     Route: 048
     Dates: end: 20070219
  2. PREMARIN [Concomitant]
  3. OMEPRAZOLE [Concomitant]

REACTIONS (6)
  - ABDOMINAL PAIN UPPER [None]
  - ABNORMAL FAECES [None]
  - DIARRHOEA [None]
  - ENDOMETRIOSIS [None]
  - NAUSEA [None]
  - VOMITING [None]
